FAERS Safety Report 12381191 (Version 3)
Quarter: 2016Q4

REPORT INFORMATION
  Report Type: Report from Study
  Country: US (occurrence: US)
  Receive Date: 20160518
  Receipt Date: 20161215
  Transmission Date: 20170207
  Serious: Yes (Hospitalization)
  Sender: FDA-Public Use
  Company Number: US-ASTELLAS-2016US018918

PATIENT
  Age: 86 Year
  Sex: Male

DRUGS (10)
  1. ALKA-SELTZER PLUS                  /00554101/ [Concomitant]
     Indication: NASOPHARYNGITIS
     Dosage: 1 TABLET, AS NEEDED
     Route: 048
     Dates: start: 1981
  2. ENZALUTAMIDE [Suspect]
     Active Substance: ENZALUTAMIDE
     Indication: PROSTATE CANCER
     Route: 048
     Dates: start: 20150612
  3. LISINOPRIL. [Concomitant]
     Active Substance: LISINOPRIL
     Indication: HYPERTENSION
     Route: 048
     Dates: start: 2000
  4. CALCIUM [Concomitant]
     Active Substance: CALCIUM
     Indication: PRODUCT USED FOR UNKNOWN INDICATION
     Dosage: UNK, TWICE DAILY
     Route: 065
  5. PROLIA [Concomitant]
     Active Substance: DENOSUMAB
     Indication: METASTASES TO BONE
     Route: 058
     Dates: start: 20150206
  6. SILVER COLLOIDAL [Concomitant]
     Active Substance: SILVER
     Indication: PAIN
  7. BABY ASPIRIN [Concomitant]
     Active Substance: ASPIRIN
     Indication: ANTICOAGULANT THERAPY
     Route: 048
     Dates: start: 2000
  8. ATENOLOL. [Concomitant]
     Active Substance: ATENOLOL
     Indication: HYPERTENSION
     Route: 048
     Dates: start: 2000
  9. VITAMIN B12 [Concomitant]
     Active Substance: CYANOCOBALAMIN
     Indication: PRODUCT USED FOR UNKNOWN INDICATION
     Route: 048
     Dates: start: 1981
  10. SILVER COLLOIDAL [Concomitant]
     Active Substance: SILVER
     Indication: ROUTINE HEALTH MAINTENANCE
     Dosage: AS NEEDED, ROUTE TOPICAL AND ORAL
     Route: 065
     Dates: start: 2010

REACTIONS (3)
  - Cervical vertebral fracture [Recovered/Resolved]
  - Syncope [Recovered/Resolved]
  - Haematoma [Recovered/Resolved]

NARRATIVE: CASE EVENT DATE: 20160509
